FAERS Safety Report 7774324-4 (Version None)
Quarter: 2011Q3

REPORT INFORMATION
  Report Type: 
  Country: None (occurrence: None)
  Receive Date: 20110921
  Receipt Date: 20110907
  Transmission Date: 20111222
  Serious: Yes (Death, Other)
  Sender: FDA-Public Use
  Company Number: 2011-3716

PATIENT
  Age: 65 Year
  Sex: Male

DRUGS (1)
  1. APO-GO AMPOULES (APO-GO) (APOMORPHINE HYDROCHLORIDE) (APOMORPHINE HYDR [Suspect]
     Indication: PRODUCT USED FOR UNKNOWN INDICATION
     Dosage: 3MG/H (PLUS A BOLUS OF 2MG) (CONTINUOUS INFUSION), SUBCUTANEOUS
     Route: 058
     Dates: start: 20091006

REACTIONS (2)
  - ROAD TRAFFIC ACCIDENT [None]
  - CIRCULATORY COLLAPSE [None]
